FAERS Safety Report 17014710 (Version 1)
Quarter: 2019Q4

REPORT INFORMATION
  Report Type: Spontaneous
  Country: US (occurrence: US)
  Receive Date: 20191111
  Receipt Date: 20191111
  Transmission Date: 20200122
  Serious: No
  Sender: FDA-Public Use
  Company Number: US-ALLERGAN-1925068US

PATIENT
  Sex: Female

DRUGS (3)
  1. LO LOESTRIN FE [Suspect]
     Active Substance: ETHINYL ESTRADIOL\NORETHINDRONE ACETATE
     Indication: CONTRACEPTION
     Dosage: 10 ?G, QD
     Route: 048
  2. DEPRESSION MEDICATIONS (UNSPECIFIED) [Concomitant]
     Indication: DEPRESSION
  3. ANXIETY MEDICATIONS (UNSPECIFIED) [Concomitant]
     Indication: ANXIETY
     Dosage: UNK

REACTIONS (2)
  - Drug interaction [Unknown]
  - Weight increased [Unknown]
